FAERS Safety Report 6247923-9 (Version None)
Quarter: 2009Q2

REPORT INFORMATION
  Report Type: 
  Country: None (occurrence: None)
  Receive Date: 20090626
  Receipt Date: 20090615
  Transmission Date: 20091009
  Serious: Yes (Other)
  Sender: FDA-Public Use
  Company Number: PHHY2009JP20325

PATIENT
  Sex: Male
  Weight: 51 kg

DRUGS (4)
  1. ZOMETA [Suspect]
     Indication: METASTASES TO BONE
     Dosage: 4 MG, UNK
     Route: 041
     Dates: start: 20090518, end: 20090518
  2. ETODOLAC [Concomitant]
     Indication: ANALGESIA
     Dosage: 400 MG, UNK
     Route: 048
     Dates: start: 20090515, end: 20090522
  3. LEUPLIN [Concomitant]
     Indication: HORMONE THERAPY
     Dosage: 3.75 MG, UNK
     Route: 058
     Dates: start: 20090519
  4. LACTEC [Concomitant]
     Indication: FLUID REPLACEMENT
     Dosage: 500 ML, UNK
     Route: 042
     Dates: start: 20090513, end: 20090518

REACTIONS (3)
  - BLOOD ALKALINE PHOSPHATASE INCREASED [None]
  - HYPOCALCAEMIA [None]
  - HYPOPHOSPHATAEMIA [None]
